FAERS Safety Report 11213784 (Version 1)
Quarter: 2015Q2

REPORT INFORMATION
  Report Type: Spontaneous
  Country: US (occurrence: US)
  Receive Date: 20150623
  Receipt Date: 20150623
  Transmission Date: 20150821
  Serious: No
  Sender: FDA-Public Use
  Company Number: US-MYLANLABS-2015M1003366

PATIENT
  Sex: Female

DRUGS (2)
  1. METHOTREXATE [Suspect]
     Active Substance: METHOTREXATE
     Indication: OFF LABEL USE
  2. METHOTREXATE [Suspect]
     Active Substance: METHOTREXATE
     Indication: PAIN
     Dosage: UNK

REACTIONS (1)
  - Influenza like illness [Recovered/Resolved]
